FAERS Safety Report 5458320-8 (Version None)
Quarter: 2007Q3

REPORT INFORMATION
  Report Type: 
  Country: None (occurrence: None)
  Receive Date: 20070919
  Receipt Date: 20060914
  Transmission Date: 20080115
  Serious: No
  Sender: FDA-Public Use
  Company Number: US-BAUSCH-2006BL005518

PATIENT
  Age: 73 Year
  Sex: Male

DRUGS (4)
  1. PROPARACAINE HCL [Suspect]
     Indication: OPHTHALMOLOGICAL EXAMINATION
     Route: 047
     Dates: start: 20060401, end: 20060401
  2. TROPICAMIDE [Suspect]
     Indication: OPHTHALMOLOGICAL EXAMINATION
     Route: 047
     Dates: start: 20060401, end: 20060401
  3. FLUORESCEIN SODIUM OPHTHALMIC STRIP [Suspect]
     Indication: DIAGNOSTIC PROCEDURE
     Route: 047
     Dates: start: 20060401, end: 20060401
  4. ANTIHYPERTENSIVES [Concomitant]
     Indication: HYPERTENSION

REACTIONS (2)
  - EYELID OEDEMA [None]
  - OCULAR HYPERAEMIA [None]
